FAERS Safety Report 9999134 (Version 1)
Quarter: 2014Q1

REPORT INFORMATION
  Report Type: Spontaneous
  Country: GB (occurrence: None)
  Receive Date: 20140310
  Receipt Date: 20140310
  Transmission Date: 20141002
  Serious: Yes (Hospitalization)
  Sender: FDA-Public Use
  Company Number: B0974325A

PATIENT
  Age: 26 Year
  Sex: Female
  Weight: 57.02 kg

DRUGS (1)
  1. PAROXETINE HYDROCHLORIDE [Suspect]
     Indication: ANXIETY
     Dates: start: 1999

REACTIONS (9)
  - Suicide attempt [None]
  - Drug dependence [None]
  - Withdrawal syndrome [None]
  - Anxiety [None]
  - Weight decreased [None]
  - Vomiting [None]
  - Aphagia [None]
  - Malaise [None]
  - Disease recurrence [None]
